FAERS Safety Report 6248213-0 (Version None)
Quarter: 2009Q2

REPORT INFORMATION
  Report Type: 
  Country: None (occurrence: None)
  Receive Date: 20090629
  Receipt Date: 20081227
  Transmission Date: 20091009
  Serious: No
  Sender: FDA-Public Use
  Company Number: A0761939A

PATIENT
  Sex: Female

DRUGS (2)
  1. ALBUTEROL [Suspect]
     Indication: ASTHMA
  2. ADVAIR HFA [Concomitant]

REACTIONS (3)
  - DISABILITY [None]
  - DRUG INEFFECTIVE [None]
  - DYSPNOEA [None]
